FAERS Safety Report 9429296 (Version 17)
Quarter: 2017Q1

REPORT INFORMATION
  Report Type: Spontaneous
  Country: CA (occurrence: CA)
  Receive Date: 20130730
  Receipt Date: 20170329
  Transmission Date: 20170429
  Serious: Yes (Hospitalization, Other)
  Sender: FDA-Public Use
  Company Number: CA-GLAXOSMITHKLINE-A1023156A

PATIENT
  Age: 30 Year
  Sex: Female
  Weight: 48 kg

DRUGS (17)
  1. BENLYSTA [Suspect]
     Active Substance: BELIMUMAB
     Dosage: UNK
  2. MORPHINE [Suspect]
     Active Substance: MORPHINE
     Indication: PAIN
     Dosage: UNK UNK, U
     Route: 065
  3. PREDNISONE. [Concomitant]
     Active Substance: PREDNISONE
     Dosage: 4 MG, QD
     Route: 048
  4. BENLYSTA [Suspect]
     Active Substance: BELIMUMAB
     Dosage: 490 MG, UNK
  5. BENLYSTA [Suspect]
     Active Substance: BELIMUMAB
     Dosage: 490 MG, UNK
     Route: 042
     Dates: start: 20160225
  6. BENLYSTA [Suspect]
     Active Substance: BELIMUMAB
     Dosage: UNK , 490MG/250 CC AT 150 CC/HR Q4 WEEKS
     Route: 042
  7. PREDNISONE. [Concomitant]
     Active Substance: PREDNISONE
     Indication: SYSTEMIC LUPUS ERYTHEMATOSUS
     Dosage: 10 MG, 1D
     Route: 048
  8. AMLODIPINE [Concomitant]
     Active Substance: AMLODIPINE BESYLATE
     Indication: BLOOD PRESSURE FLUCTUATION
     Dosage: UNK
  9. BENLYSTA [Suspect]
     Active Substance: BELIMUMAB
     Indication: SYSTEMIC LUPUS ERYTHEMATOSUS
     Dosage: 490 MG AT WEEK 0, 2, 4 THEN EVERY 4 WEEKS
     Route: 042
     Dates: start: 20120319
  10. SOLU-MEDROL [Concomitant]
     Active Substance: METHYLPREDNISOLONE SODIUM SUCCINATE
     Indication: PRODUCT USED FOR UNKNOWN INDICATION
     Dosage: 8 MG, 1D
     Route: 048
  11. ALTACE [Concomitant]
     Active Substance: RAMIPRIL
     Indication: PRODUCT USED FOR UNKNOWN INDICATION
     Dosage: UNK
  12. BENLYSTA [Suspect]
     Active Substance: BELIMUMAB
     Dosage: UNK
     Route: 042
     Dates: start: 20141111
  13. BENLYSTA [Suspect]
     Active Substance: BELIMUMAB
     Dosage: 490 MG, UNK
     Route: 042
     Dates: start: 20160225
  14. BENLYSTA [Suspect]
     Active Substance: BELIMUMAB
     Dosage: UNK , 490MG/250 CC AT 50 CC/HR Q4 WEEKS
     Route: 042
  15. BENLYSTA [Suspect]
     Active Substance: BELIMUMAB
     Dosage: UNK , 490MG/250 CC AT 250 CC/HR Q4 WEEKS
     Route: 042
  16. BENLYSTA [Suspect]
     Active Substance: BELIMUMAB
     Dosage: 490 MG, UNK
  17. CYCLOSPORINE. [Concomitant]
     Active Substance: CYCLOSPORINE
     Indication: SYSTEMIC LUPUS ERYTHEMATOSUS
     Dosage: 200 MG, 1D
     Route: 048

REACTIONS (22)
  - Abdominal pain [Recovered/Resolved]
  - Anaemia [Not Recovered/Not Resolved]
  - Systemic lupus erythematosus [Unknown]
  - Pyrexia [Unknown]
  - Nasopharyngitis [Not Recovered/Not Resolved]
  - Ascites [Recovered/Resolved]
  - Asthenia [Not Recovered/Not Resolved]
  - Dry skin [Unknown]
  - Malaise [Unknown]
  - Adverse event [Unknown]
  - Dysmenorrhoea [Recovering/Resolving]
  - Heat stroke [Unknown]
  - Haemorrhagic cyst [Unknown]
  - Lower respiratory tract infection [Unknown]
  - Ovarian cyst [Unknown]
  - Influenza [Recovered/Resolved]
  - Hypertension [Unknown]
  - Vomiting [Unknown]
  - Abdominal distension [Recovered/Resolved]
  - Genital disorder female [Recovered/Resolved]
  - Pruritus [Recovered/Resolved]
  - Decreased appetite [Not Recovered/Not Resolved]

NARRATIVE: CASE EVENT DATE: 201209
